FAERS Safety Report 5394189-8 (Version None)
Quarter: 2007Q3

REPORT INFORMATION
  Report Type: 
  Country: None (occurrence: None)
  Receive Date: 20070723
  Receipt Date: 20070403
  Transmission Date: 20080115
  Serious: No
  Sender: FDA-Public Use
  Company Number: A0645773A

PATIENT
  Age: 73 Year
  Sex: Male

DRUGS (8)
  1. AVANDIA [Suspect]
     Dosage: 8MG PER DAY
     Route: 048
     Dates: start: 20050101
  2. GLIPIZIDE [Concomitant]
  3. ATENOLOL [Concomitant]
  4. TRIAMTERENE [Concomitant]
  5. HYDROCHLOROTHIAZIDE [Concomitant]
  6. METFORMIN HCL [Concomitant]
  7. ALTACE [Concomitant]
  8. LOVASTATIN [Concomitant]

REACTIONS (4)
  - DIZZINESS [None]
  - EYE PAIN [None]
  - FATIGUE [None]
  - VISION BLURRED [None]
